FAERS Safety Report 9052431 (Version 1)
Quarter: 2013Q1

REPORT INFORMATION
  Report Type: Spontaneous
  Country: FR (occurrence: FR)
  Receive Date: 20130207
  Receipt Date: 20130207
  Transmission Date: 20140127
  Serious: Yes (Hospitalization)
  Sender: FDA-Public Use
  Company Number: FR-PFIZER INC-2013043277

PATIENT
  Age: 27 Year
  Sex: Female

DRUGS (5)
  1. MEDROL [Suspect]
     Indication: NASOPHARYNGITIS
     Dosage: 32 MG, 1X/DAY
     Route: 048
     Dates: start: 20120920, end: 20120926
  2. ORELOX [Suspect]
     Indication: NASOPHARYNGITIS
     Dosage: 200 MG, 2X/DAY
     Route: 048
     Dates: start: 20120920, end: 20120929
  3. ACETAMINOPHEN [Suspect]
     Indication: NASOPHARYNGITIS
     Dosage: 1 G, 3X/DAY
     Route: 048
     Dates: start: 20120920, end: 20120929
  4. EXOMUC [Suspect]
     Indication: NASOPHARYNGITIS
     Dosage: 200 MG, 3X/DAY
     Route: 048
     Dates: start: 20120920, end: 20120929
  5. NECYRANE [Suspect]
     Indication: NASOPHARYNGITIS
     Dosage: 1 DF, 4X/DAY
     Route: 045
     Dates: start: 20120920, end: 20120924

REACTIONS (1)
  - Colitis ischaemic [Recovered/Resolved]
